FAERS Safety Report 6959079-5 (Version None)
Quarter: 2010Q3

REPORT INFORMATION
  Report Type: 
  Country: None (occurrence: None)
  Receive Date: 20100831
  Receipt Date: 20100824
  Transmission Date: 20110219
  Serious: Yes (Death)
  Sender: FDA-Public Use
  Company Number: US-AMGEN-QUU430034

PATIENT
  Sex: Male

DRUGS (2)
  1. NPLATE [Suspect]
     Indication: IDIOPATHIC THROMBOCYTOPENIC PURPURA
     Dates: start: 20100225, end: 20100304
  2. NPLATE [Suspect]
     Indication: THROMBOCYTOPENIA

REACTIONS (2)
  - METASTASES TO CENTRAL NERVOUS SYSTEM [None]
  - SMALL CELL LUNG CANCER METASTATIC [None]
